FAERS Safety Report 4267107-3 (Version None)
Quarter: 2004Q1

REPORT INFORMATION
  Report Type: 
  Country: None (occurrence: None)
  Receive Date: 20040107
  Receipt Date: 20031231
  Transmission Date: 20041129
  Serious: Yes (Death, Hospitalization)
  Sender: FDA-Public Use
  Company Number: HQWYE642616DEC03

PATIENT
  Age: 72 Year
  Sex: Male
  Weight: 146 kg

DRUGS (2)
  1. MYLOTARG [Suspect]
     Indication: ACUTE MYELOID LEUKAEMIA
     Dosage: 20 MG 1X PER 1 DAY, INTRAVENOUS; 19 MG 1X PER 1 DAY, INTRAVENOUS
     Route: 042
     Dates: start: 20030823, end: 20030823
  2. MYLOTARG [Suspect]
     Indication: ACUTE MYELOID LEUKAEMIA
     Dosage: 20 MG 1X PER 1 DAY, INTRAVENOUS; 19 MG 1X PER 1 DAY, INTRAVENOUS
     Route: 042
     Dates: start: 20030906, end: 20030906

REACTIONS (8)
  - ARTHRALGIA [None]
  - CHRONIC LEUKAEMIA [None]
  - HAEMOGLOBIN DECREASED [None]
  - MALIGNANT NEOPLASM PROGRESSION [None]
  - NEUTROPHIL COUNT DECREASED [None]
  - PLATELET COUNT DECREASED [None]
  - PYREXIA [None]
  - WHITE BLOOD CELL COUNT DECREASED [None]
